FAERS Safety Report 10247205 (Version 2)
Quarter: 2014Q2

REPORT INFORMATION
  Report Type: Report from Study
  Country: US (occurrence: US)
  Receive Date: 20140619
  Receipt Date: 20140629
  Transmission Date: 20141212
  Serious: Yes (Other)
  Sender: FDA-Public Use
  Company Number: PHEH2014US012246

PATIENT
  Age: 48 Year
  Sex: Female

DRUGS (2)
  1. TEGRETOL [Suspect]
     Dosage: 200 MG, UNK
     Route: 048
  2. TEGRETOL [Suspect]
     Dosage: 400 MG, UNK
     Route: 048

REACTIONS (1)
  - Convulsion [Unknown]
